FAERS Safety Report 7332990-1 (Version None)
Quarter: 2011Q1

REPORT INFORMATION
  Report Type: 
  Country: None (occurrence: None)
  Receive Date: 20110304
  Receipt Date: 20110222
  Transmission Date: 20110831
  Serious: Yes (Hospitalization)
  Sender: FDA-Public Use
  Company Number: US-JNJFOC-2010028983

PATIENT
  Sex: Male
  Weight: 73.94 kg

DRUGS (6)
  1. ASPIRIN [Concomitant]
     Route: 048
  2. LISINOPRIL [Concomitant]
     Route: 048
  3. NIFEDIPINE [Concomitant]
     Route: 048
  4. MULTI-SYMPTOM ROLAIDS PLUS ANTI-GAS SOFTCHEWS FRUIT [Suspect]
     Indication: DYSPEPSIA
     Dosage: DAILY DOSE TEXT: TWO CHEWS ^OCCASIONAL^
     Route: 048
     Dates: start: 20100626, end: 20100701
  5. HYDROCHLOROTHIAZIDE [Concomitant]
     Route: 048
  6. LIPITOR [Concomitant]
     Route: 048

REACTIONS (15)
  - HEADACHE [None]
  - VOMITING [None]
  - ABDOMINAL PAIN [None]
  - SURGERY [None]
  - FOREIGN BODY [None]
  - BACK PAIN [None]
  - CHOLELITHIASIS [None]
  - CHILLS [None]
  - FATIGUE [None]
  - AORTIC ANEURYSM [None]
  - MALAISE [None]
  - PAIN [None]
  - DIVERTICULUM INTESTINAL [None]
  - NAUSEA [None]
  - PRODUCT CONTAMINATION PHYSICAL [None]
